FAERS Safety Report 7082514-1 (Version None)
Quarter: 2010Q4

REPORT INFORMATION
  Report Type: 
  Country: None (occurrence: None)
  Receive Date: 20101026
  Receipt Date: 20101013
  Transmission Date: 20110411
  Serious: Yes (Other)
  Sender: FDA-Public Use
  Company Number: 724615

PATIENT
  Age: 48 Year
  Sex: Female
  Weight: 80 kg

DRUGS (26)
  1. HEPARIN SODIUM 1,000 UNITS IN DEXTROSE 5% [Suspect]
     Indication: PULMONARY EMBOLISM
     Dosage: 25,000 UNITS, INTRAVENOUS DRIP
     Route: 041
     Dates: start: 20071214, end: 20071221
  2. HEPARIN SODIUM 1,000 UNITS IN DEXTROSE 5% [Suspect]
     Indication: PULMONARY EMBOLISM
     Dosage: 25,000 UNITS, INTRAVENOUS DRIP
     Route: 041
     Dates: start: 20071214, end: 20071221
  3. HEPARIN SODIUM [Suspect]
     Indication: PULMONARY EMBOLISM
     Dosage: 6400 UNITS, INTRAVENOUS
     Route: 042
     Dates: start: 20071214, end: 20071221
  4. HEPARIN SODIUM [Suspect]
     Indication: PULMONARY EMBOLISM
     Dosage: 6400 UNITS, INTRAVENOUS
     Route: 042
     Dates: start: 20071214, end: 20071221
  5. LORAZEPAM INJ, USP, 2 MG/ML + 4MG/ML IN CARPUJECT (MCPHERSON) (LORAZEP [Concomitant]
  6. LOVENOX [Concomitant]
  7. COUMADIN [Concomitant]
  8. LESCOL [Concomitant]
  9. ZETIA [Concomitant]
  10. SYNTHROID [Concomitant]
  11. AMITIZA [Concomitant]
  12. ACIPHEX [Concomitant]
  13. ZYRTEC [Concomitant]
  14. TOPAMAX [Concomitant]
  15. EFFEXOR [Concomitant]
  16. ADVAIR DISKUS 100/50 [Concomitant]
  17. AXERT [Concomitant]
  18. PERCOCET-5 [Concomitant]
  19. (IMITREX DF) [Concomitant]
  20. LESCOL [Concomitant]
  21. (ALUMINIUM HYDROXI W/MAGNESIUM HYDROX/SIMETHIC) [Concomitant]
  22. TYLENOL (CAPLET) [Concomitant]
  23. ROXICET [Concomitant]
  24. (PANTOPRAZOLE) [Concomitant]
  25. MIRALAX [Concomitant]
  26. AMBIEN [Concomitant]

REACTIONS (4)
  - ADRENAL HAEMORRHAGE [None]
  - CHEST DISCOMFORT [None]
  - DYSPNOEA [None]
  - PARAESTHESIA [None]
